FAERS Safety Report 8462830-9 (Version None)
Quarter: 2012Q2

REPORT INFORMATION
  Report Type: 
  Country: None (occurrence: None)
  Receive Date: 20120625
  Receipt Date: 20120615
  Transmission Date: 20120825
  Serious: Yes (Hospitalization)
  Sender: FDA-Public Use
  Company Number: US-ASTRAZENECA-2012SE40470

PATIENT
  Age: 77 Year
  Sex: Female
  Weight: 63.5 kg

DRUGS (6)
  1. METFORMIN HCL [Concomitant]
     Indication: DIABETES MELLITUS
     Route: 048
  2. VITAMIN D [Concomitant]
     Dosage: DAILY
     Route: 048
  3. CENTRUM MULTIVITAMIN [Concomitant]
     Dosage: DAILY
     Route: 048
  4. DIOVAN [Concomitant]
     Indication: HYPERTENSION
     Route: 048
  5. CRESTOR [Suspect]
     Indication: BLOOD CHOLESTEROL
     Route: 048
  6. CALCIUM [Concomitant]
     Dosage: DAILY
     Route: 048

REACTIONS (4)
  - CLOSTRIDIAL INFECTION [None]
  - WEIGHT DECREASED [None]
  - HYPERTENSION [None]
  - DIABETES MELLITUS [None]
